FAERS Safety Report 11157090 (Version 1)
Quarter: 2015Q2

REPORT INFORMATION
  Report Type: Spontaneous
  Country: PL (occurrence: PL)
  Receive Date: 20150602
  Receipt Date: 20150602
  Transmission Date: 20150821
  Serious: Yes (Other)
  Sender: FDA-Public Use
  Company Number: PL-TEVA-567234ISR

PATIENT
  Sex: Female
  Weight: 74 kg

DRUGS (2)
  1. GABAPENTIN TEVA [Suspect]
     Active Substance: GABAPENTIN
     Indication: SOFT TISSUE DISORDER
     Route: 048
     Dates: start: 20130213, end: 20130215
  2. AMITRIPTYLINE [Concomitant]
     Active Substance: AMITRIPTYLINE
     Dosage: 100 MILLIGRAM DAILY;

REACTIONS (3)
  - Blood pressure increased [Recovered/Resolved]
  - Headache [Recovered/Resolved]
  - Dizziness [Recovered/Resolved]
